FAERS Safety Report 5352100-X (Version None)
Quarter: 2007Q2

REPORT INFORMATION
  Report Type: 
  Country: None (occurrence: None)
  Receive Date: 20070611
  Receipt Date: 20070607
  Transmission Date: 20071010
  Serious: Yes (Other)
  Sender: FDA-Public Use
  Company Number: US-BRISTOL-MYERS SQUIBB COMPANY-13778154

PATIENT
  Sex: Female

DRUGS (2)
  1. BUSPAR [Suspect]
  2. TEQUIN [Suspect]

REACTIONS (2)
  - ACUTE RESPIRATORY FAILURE [None]
  - CHOKING [None]
